FAERS Safety Report 5945163-1 (Version None)
Quarter: 2008Q4

REPORT INFORMATION
  Report Type: 
  Country: None (occurrence: None)
  Receive Date: 20081107
  Receipt Date: 20081031
  Transmission Date: 20090506
  Serious: Yes (Hospitalization)
  Sender: FDA-Public Use
  Company Number: A0755435A

PATIENT
  Age: 51 Year
  Sex: Female
  Weight: 77.3 kg

DRUGS (3)
  1. AVANDIA [Suspect]
     Dosage: 4MG TWICE PER DAY
     Route: 048
     Dates: start: 20020319, end: 20060613
  2. HUMALOG [Concomitant]
     Dates: start: 20070101
  3. HUMULIN [Concomitant]
     Dates: start: 20010101

REACTIONS (8)
  - ANXIETY [None]
  - ASTHENIA [None]
  - CARDIOVASCULAR DISORDER [None]
  - CHEST PAIN [None]
  - DEPRESSION [None]
  - DYSPNOEA [None]
  - HYPERHIDROSIS [None]
  - MYOCARDIAL INFARCTION [None]
